FAERS Safety Report 7555494-X (Version None)
Quarter: 2011Q2

REPORT INFORMATION
  Report Type: 
  Country: None (occurrence: None)
  Receive Date: 20110617
  Receipt Date: 20110603
  Transmission Date: 20111010
  Serious: Yes (Death, Other)
  Sender: FDA-Public Use
  Company Number: JP-PFIZER INC-2011091635

PATIENT
  Age: 73 Year
  Sex: Female

DRUGS (16)
  1. ALFAROL [Concomitant]
     Dosage: UNK
  2. CALCIUM CARBONATE [Concomitant]
     Dosage: UNK
  3. ZANTAC [Concomitant]
     Dosage: UNK
     Dates: end: 20110303
  4. MUCOSTA [Concomitant]
     Dosage: UNK
     Dates: end: 20110303
  5. MIGLITOL [Suspect]
     Indication: DIABETES MELLITUS
     Dosage: 50 MG, 3X/DAY
     Route: 048
     Dates: start: 20110226, end: 20110302
  6. MEXITIL [Concomitant]
     Dosage: UNK
  7. EPADEL [Concomitant]
     Dosage: UNK
     Dates: end: 20110303
  8. SHAKUYAKU-KANZO-TO [Concomitant]
     Dosage: UNK
  9. PATANOL [Concomitant]
     Dosage: UNK
  10. IDOMETHINE [Concomitant]
     Dosage: UNK
  11. MITIGLINIDE [Concomitant]
     Dosage: UNK
  12. METHYCOBAL [Concomitant]
     Dosage: UNK
     Dates: end: 20110303
  13. PREDNISOLONE [Concomitant]
     Dosage: UNK
     Dates: end: 20110303
  14. KETOPROFEN [Concomitant]
     Dosage: UNK
  15. PURSENNID [Concomitant]
     Dosage: UNK
  16. ASPIRIN [Concomitant]
     Dosage: UNK
     Dates: end: 20110303

REACTIONS (6)
  - PERITONITIS [None]
  - DISSEMINATED INTRAVASCULAR COAGULATION [None]
  - SMALL INTESTINAL PERFORATION [None]
  - SUTURE RELATED COMPLICATION [None]
  - BLOOD PRESSURE DECREASED [None]
  - SHOCK [None]
